FAERS Safety Report 20833619 (Version 1)
Quarter: 2022Q2

REPORT INFORMATION
  Report Type: Spontaneous
  Country: US (occurrence: None)
  Receive Date: 20220514
  Receipt Date: 20220514
  Transmission Date: 20220720
  Serious: No
  Sender: FDA-Public Use
  Company Number: None

PATIENT
  Age: 28 Year
  Sex: Female
  Weight: 69.75 kg

DRUGS (10)
  1. DEXTROAMPHET SACCHARAT, AMPHET ASPARTATE, DEXTROAMPHET SULFATE AND AMP [Suspect]
     Active Substance: AMPHETAMINE ASPARTATE\AMPHETAMINE SULFATE\DEXTROAMPHETAMINE SACCHARATE\DEXTROAMPHETAMINE SULFATE
     Indication: Attention deficit hyperactivity disorder
     Dosage: OTHER QUANTITY : 30 TABLET(S);?FREQUENCY : DAILY;?
     Route: 048
     Dates: start: 20220508, end: 20220511
  2. Adderall IR 15MG [Concomitant]
  3. Benadryl 25MG [Concomitant]
  4. LORAZEPAM [Concomitant]
     Active Substance: LORAZEPAM
  5. GLYCOPYRROLATE [Concomitant]
     Active Substance: GLYCOPYRROLATE
  6. FLONASE [Concomitant]
     Active Substance: FLUTICASONE PROPIONATE
  7. ALBUTEROL SULFATE [Concomitant]
  8. FLOVENT [Concomitant]
     Active Substance: FLUTICASONE PROPIONATE
  9. Daily Women^s multivitamin One a Day [Concomitant]
  10. ZYRTEC [Concomitant]
     Active Substance: CETIRIZINE HYDROCHLORIDE

REACTIONS (5)
  - Dizziness [None]
  - Vertigo [None]
  - Nausea [None]
  - Tremor [None]
  - Product substitution issue [None]

NARRATIVE: CASE EVENT DATE: 20220512
